FAERS Safety Report 23411402 (Version 1)
Quarter: 2024Q1

REPORT INFORMATION
  Report Type: Spontaneous
  Country: CN (occurrence: CN)
  Receive Date: 20240117
  Receipt Date: 20240117
  Transmission Date: 20240409
  Serious: Yes (Other)
  Sender: FDA-Public Use
  Company Number: CN-PFIZER INC-PV202400004739

PATIENT
  Age: 22 Year
  Sex: Male
  Weight: 85 kg

DRUGS (3)
  1. CYTARABINE [Suspect]
     Active Substance: CYTARABINE
     Indication: Therapeutic procedure
     Dosage: 5.5 G, 2X/DAY
     Route: 041
     Dates: start: 20231205, end: 20231205
  2. CYTARABINE [Suspect]
     Active Substance: CYTARABINE
     Dosage: 5.5 G, 2X/DAY
     Route: 041
     Dates: start: 20231207, end: 20231207
  3. CYTARABINE [Suspect]
     Active Substance: CYTARABINE
     Dosage: 5.5 G, 2X/DAY
     Route: 041
     Dates: start: 20231209, end: 20231209

REACTIONS (1)
  - Dermatitis allergic [Recovered/Resolved]

NARRATIVE: CASE EVENT DATE: 20231207
